FAERS Safety Report 20691186 (Version 1)
Quarter: 2022Q2

REPORT INFORMATION
  Report Type: Spontaneous
  Country: US (occurrence: US)
  Receive Date: 20220408
  Receipt Date: 20220408
  Transmission Date: 20220721
  Serious: Yes (Other)
  Sender: FDA-Public Use
  Company Number: US-INTRA-CELLULAR THERAPIES, INC.-2022ICT00041

PATIENT
  Age: 24 Year
  Sex: Male

DRUGS (3)
  1. CAPLYTA [Suspect]
     Active Substance: LUMATEPERONE
     Indication: Schizoaffective disorder
     Dosage: 42 MG, 1X/DAY
     Route: 048
     Dates: start: 202201
  2. CAPLYTA [Suspect]
     Active Substance: LUMATEPERONE
     Indication: Bipolar disorder
  3. ABILIFY MAINTENA [Suspect]
     Active Substance: ARIPIPRAZOLE

REACTIONS (2)
  - Tardive dyskinesia [Unknown]
  - Movement disorder [Unknown]

NARRATIVE: CASE EVENT DATE: 20220101
